FAERS Safety Report 21478432 (Version 1)
Quarter: 2022Q4

REPORT INFORMATION
  Report Type: Spontaneous
  Country: CA (occurrence: CA)
  Receive Date: 20221019
  Receipt Date: 20221019
  Transmission Date: 20230113
  Serious: Yes (Hospitalization, Other)
  Sender: FDA-Public Use
  Company Number: CA-ANIPHARMA-2020-CA-001532

PATIENT
  Age: 59 Year
  Sex: Female

DRUGS (9)
  1. CANDESARTAN CILEXETIL [Suspect]
     Active Substance: CANDESARTAN CILEXETIL
     Indication: Blood pressure increased
     Dosage: 16 MG DAILY / 24 MG DAILY / 8 MG DAILY / 4 MG DAILY
     Route: 048
     Dates: start: 20190613
  2. AMLODIPINE [Suspect]
     Active Substance: AMLODIPINE BESYLATE
     Dosage: 2.5 MG DAILY / 5 MG DAILY / 3 MG DAILY
     Route: 048
  3. BETAHISTINE [Concomitant]
     Active Substance: BETAHISTINE
     Dosage: 12 MG UNK
     Route: 065
  4. GLICLAZIDE [Concomitant]
     Active Substance: GLICLAZIDE
     Route: 065
  5. SANDOSTATIN [Suspect]
     Active Substance: OCTREOTIDE ACETATE
     Dosage: 60 MG MONTH
     Route: 030
  6. HYDROCHLOROTHIAZIDE [Concomitant]
     Active Substance: HYDROCHLOROTHIAZIDE
     Dosage: 25 MG DAILY
     Route: 065
     Dates: start: 20190625
  7. METFORMIN [Concomitant]
     Active Substance: METFORMIN HYDROCHLORIDE
     Dosage: DOSE: 500 MG BID / DOSE: 1000 MG BID
     Route: 065
     Dates: start: 20190320
  8. METOPROLOL [Concomitant]
     Active Substance: METOPROLOL
     Dosage: DOSE: 75 MG BID / DOSE: 50 MG BID / DOSE: 50 MG BID / DOSE: 25 MG BID / DOSE: 37.5 MG BID / DOSE: 10
     Route: 048
     Dates: start: 20180329
  9. NAPROSYN [Concomitant]
     Active Substance: NAPROXEN
     Route: 065

REACTIONS (65)
  - Anaemia [Unknown]
  - Blood iron decreased [Unknown]
  - Blood urine present [Recovered/Resolved]
  - Carcinoid tumour [Unknown]
  - Cellulitis [Unknown]
  - Cholelithiasis [Unknown]
  - Arthralgia [Recovering/Resolving]
  - Cough [Unknown]
  - Crystal arthropathy [Unknown]
  - Diabetes mellitus [Unknown]
  - Diarrhoea [Recovered/Resolved]
  - Dizziness [Unknown]
  - Endometrial cancer stage I [Unknown]
  - Endometrial hyperplasia [Unknown]
  - Endometriosis [Unknown]
  - Arthritis [Unknown]
  - Fatigue [Recovering/Resolving]
  - Gout [Unknown]
  - Groin pain [Unknown]
  - Haemorrhage [Unknown]
  - Hypoaesthesia [Unknown]
  - Hypomenorrhoea [Unknown]
  - Asthenia [Unknown]
  - Hypothyroidism [Recovering/Resolving]
  - Injection site erythema [Unknown]
  - Injection site mass [Unknown]
  - Injection site pain [Unknown]
  - Injection site reaction [Unknown]
  - Joint stiffness [Unknown]
  - Joint swelling [Recovering/Resolving]
  - Liver function test increased [Recovered/Resolved]
  - Malaise [Unknown]
  - Malignant neoplasm progression [Unknown]
  - Metastases to bladder [Unknown]
  - Metastases to fallopian tube [Unknown]
  - Metastases to ovary [Unknown]
  - Migraine [Unknown]
  - Myalgia [Recovering/Resolving]
  - Nasopharyngitis [Recovering/Resolving]
  - Nausea [Unknown]
  - Nephrolithiasis [Unknown]
  - Abdominal adhesions [Unknown]
  - Neuralgia [Unknown]
  - Pain [Recovering/Resolving]
  - Pain in extremity [Unknown]
  - Palpitations [Unknown]
  - Paraesthesia [Unknown]
  - Polyp [Unknown]
  - Poor quality sleep [Unknown]
  - Abdominal pain [Recovering/Resolving]
  - Second primary malignancy [Unknown]
  - Serum serotonin increased [Unknown]
  - Subcutaneous haematoma [Unknown]
  - Syncope [Unknown]
  - Urinary tract infection [Unknown]
  - Urine output decreased [Unknown]
  - Vertigo [Unknown]
  - Vomiting [Unknown]
  - Joint swelling [Unknown]
  - Decreased appetite [Unknown]
  - Cystitis [Unknown]
  - Blood pressure increased [Unknown]
  - Blood pressure systolic decreased [Unknown]
  - Acne [Unknown]
  - Needle issue [Unknown]

NARRATIVE: CASE EVENT DATE: 20190101
